FAERS Safety Report 9207413 (Version 2)
Quarter: 2013Q3

REPORT INFORMATION
  Report Type: Report from Study
  Country: US (occurrence: US)
  Receive Date: 20130403
  Receipt Date: 20130802
  Transmission Date: 20140515
  Serious: Yes (Other)
  Sender: FDA-Public Use
  Company Number: US-ELI_LILLY_AND_COMPANY-US201303009772

PATIENT
  Age: 59 Year
  Sex: Female

DRUGS (1)
  1. TERIPARATIDE [Suspect]

REACTIONS (4)
  - Eye haemorrhage [Unknown]
  - Convulsion [Unknown]
  - Road traffic accident [Unknown]
  - Blood pressure increased [Unknown]
